FAERS Safety Report 4998586-1 (Version None)
Quarter: 2006Q2

REPORT INFORMATION
  Report Type: 
  Country: None (occurrence: None)
  Receive Date: 20060510
  Receipt Date: 20060307
  Transmission Date: 20061013
  Serious: Yes (Other)
  Sender: FDA-Public Use
  Company Number: US-JNJFOC-20051205809

PATIENT
  Sex: Female
  Weight: 11.79 kg

DRUGS (1)
  1. GRIFULVIN V, UNSPECIFIED [Suspect]
     Dates: start: 20051005, end: 20051026

REACTIONS (1)
  - BLOOD ALKALINE PHOSPHATASE INCREASED [None]
